FAERS Safety Report 7597069-2 (Version None)
Quarter: 2011Q3

REPORT INFORMATION
  Report Type: 
  Country: None (occurrence: None)
  Receive Date: 20110708
  Receipt Date: 20110705
  Transmission Date: 20111222
  Serious: Yes (Congenital Anomaly, Other)
  Sender: FDA-Public Use
  Company Number: US-PFIZER INC-2008051543

PATIENT
  Sex: Female
  Weight: 2.975 kg

DRUGS (5)
  1. ASCORBIC ACID [Concomitant]
     Dosage: UNK
     Route: 064
  2. ZOLOFT [Suspect]
     Indication: DEPRESSION
     Dosage: 50 MG, UNK
     Route: 064
     Dates: start: 20070215
  3. ZOLOFT [Suspect]
     Indication: ANXIETY
  4. FOLIC ACID [Concomitant]
     Dosage: UNK
     Route: 064
  5. PRENATAL VITAMINS [Concomitant]
     Dosage: UNK
     Route: 064

REACTIONS (6)
  - ACIDOSIS [None]
  - HYPOPLASTIC LEFT HEART SYNDROME [None]
  - KNEE DEFORMITY [None]
  - MATERNAL EXPOSURE DURING PREGNANCY [None]
  - ASTHENIA [None]
  - DEVELOPMENTAL DELAY [None]
